FAERS Safety Report 7951943-3 (Version None)
Quarter: 2011Q4

REPORT INFORMATION
  Report Type: 
  Country: None (occurrence: None)
  Receive Date: 20111130
  Receipt Date: 20111130
  Transmission Date: 20120403
  Serious: Yes (Hospitalization)
  Sender: FDA-Public Use
  Company Number: None

PATIENT
  Age: 89 Year
  Sex: Male
  Weight: 92 kg

DRUGS (4)
  1. MOXIFLOXACIN [Suspect]
     Indication: PNEUMONIA
     Dosage: 400 MG EVERY DAY PO
     Route: 048
     Dates: start: 20110726, end: 20110802
  2. MOXIFLOXACIN [Suspect]
     Indication: UPPER RESPIRATORY TRACT INFECTION
     Dosage: 400 MG EVERY DAY PO
     Route: 048
     Dates: start: 20110726, end: 20110802
  3. PIPERACILLIN AND TAZOBACTAM [Suspect]
     Indication: UPPER RESPIRATORY TRACT INFECTION
     Dosage: 2.25 GM QID IV
     Route: 042
     Dates: start: 20110724, end: 20110726
  4. PIPERACILLIN AND TAZOBACTAM [Suspect]
     Indication: PNEUMONIA
     Dosage: 2.25 GM QID IV
     Route: 042
     Dates: start: 20110724, end: 20110726

REACTIONS (5)
  - CLOSTRIDIUM TEST POSITIVE [None]
  - CARDIAC FAILURE CONGESTIVE [None]
  - ABDOMINAL PAIN [None]
  - CHRONIC OBSTRUCTIVE PULMONARY DISEASE [None]
  - CONDITION AGGRAVATED [None]
